FAERS Safety Report 6499013-8 (Version None)
Quarter: 2009Q4

REPORT INFORMATION
  Report Type: 
  Country: None (occurrence: None)
  Receive Date: 20091215
  Receipt Date: 20091215
  Transmission Date: 20100525
  Serious: Yes (Hospitalization)
  Sender: FDA-Public Use
  Company Number: US-ROXANE LABORATORIES, INC.-2009-RO-01267RO

PATIENT
  Sex: Female

DRUGS (3)
  1. PREDNISONE [Suspect]
  2. LANTUS [Suspect]
     Dosage: 20 U
     Route: 058
  3. OPTICLICK [Suspect]
     Indication: BLOOD INSULIN
     Dates: start: 20090901

REACTIONS (3)
  - BLOOD GLUCOSE INCREASED [None]
  - CARDIAC FAILURE CONGESTIVE [None]
  - PNEUMONIA [None]
